FAERS Safety Report 9049114 (Version 5)
Quarter: 2013Q2

REPORT INFORMATION
  Report Type: Spontaneous
  Country: US (occurrence: US)
  Receive Date: 20130205
  Receipt Date: 20130405
  Transmission Date: 20140414
  Serious: No
  Sender: FDA-Public Use
  Company Number: US-PFIZER INC-2013042999

PATIENT
  Age: 41 Year
  Sex: Male
  Weight: 118 kg

DRUGS (4)
  1. DEPO-TESTOSTERONE [Suspect]
     Indication: BLOOD TESTOSTERONE DECREASED
     Dosage: 200 MG/ML, (1ML IN Q 2 WEEKS)
     Route: 030
     Dates: start: 201201
  2. DEPO-TESTOSTERONE [Suspect]
     Indication: HYPOGONADISM
     Dosage: 400 MG, ONCE IN 2WEEK
     Route: 030
  3. DEPO-TESTOSTERONE [Suspect]
     Dosage: 400 MG, ONCE IN 2WEEK
     Route: 030
  4. ZOLOFT [Concomitant]
     Indication: DEPRESSION
     Dosage: UNK

REACTIONS (1)
  - Drug ineffective [Unknown]
